FAERS Safety Report 25067253 (Version 2)
Quarter: 2025Q1

REPORT INFORMATION
  Report Type: Report from Study
  Country: TR (occurrence: TR)
  Receive Date: 20250312
  Receipt Date: 20250324
  Transmission Date: 20250409
  Serious: Yes (Other)
  Sender: TEVA
  Company Number: TR-TEVA-VS-3306948

PATIENT

DRUGS (1)
  1. METHOTREXATE [Suspect]
     Active Substance: METHOTREXATE
     Indication: Takayasu^s arteritis
     Route: 065

REACTIONS (2)
  - Hepatic enzyme increased [Unknown]
  - Thrombocytopenia [Unknown]
